FAERS Safety Report 5322108-9 (Version None)
Quarter: 2007Q2

REPORT INFORMATION
  Report Type: 
  Country: None (occurrence: None)
  Receive Date: 20070222
  Receipt Date: 20060426
  Transmission Date: 20071010
  Serious: Yes (Death)
  Sender: FDA-Public Use
  Company Number: HQWYE109021DEC05

PATIENT
  Sex: Male

DRUGS (2)
  1. EFFEXOR [Suspect]
     Dates: start: 20021201, end: 20030501
  2. NEURONTIN [Suspect]
     Dates: end: 20030501

REACTIONS (1)
  - COMPLETED SUICIDE [None]
